FAERS Safety Report 10285240 (Version 1)
Quarter: 2014Q3

REPORT INFORMATION
  Report Type: Report from Study
  Country: US (occurrence: US)
  Receive Date: 20140708
  Receipt Date: 20140708
  Transmission Date: 20150326
  Serious: Yes (Death)
  Sender: FDA-Public Use
  Company Number: US-ABBVIE-14P-163-1256219-00

PATIENT
  Age: 31 Year
  Sex: Male

DRUGS (11)
  1. CLONAZEPAM. [Concomitant]
     Active Substance: CLONAZEPAM
     Indication: PRODUCT USED FOR UNKNOWN INDICATION
  2. MARINOL [Suspect]
     Active Substance: DRONABINOL
     Indication: WEIGHT DECREASED
  3. MARINOL [Suspect]
     Active Substance: DRONABINOL
     Indication: ACQUIRED IMMUNODEFICIENCY SYNDROME
  4. ANDROGEL [Suspect]
     Active Substance: TESTOSTERONE
     Indication: ACQUIRED IMMUNODEFICIENCY SYNDROME
     Dosage: 2 PUMPS BID
  5. PRAZOSIN [Concomitant]
     Active Substance: PRAZOSIN
     Indication: PRODUCT USED FOR UNKNOWN INDICATION
  6. MARINOL [Suspect]
     Active Substance: DRONABINOL
     Indication: DECREASED APPETITE
     Dates: start: 20140610
  7. CYMBALTA [Concomitant]
     Active Substance: DULOXETINE HYDROCHLORIDE
     Indication: PRODUCT USED FOR UNKNOWN INDICATION
  8. TRAMADOL [Concomitant]
     Active Substance: TRAMADOL
     Indication: PRODUCT USED FOR UNKNOWN INDICATION
  9. VALTREX [Concomitant]
     Active Substance: VALACYCLOVIR HYDROCHLORIDE
     Indication: PRODUCT USED FOR UNKNOWN INDICATION
  10. RITALIN [Concomitant]
     Active Substance: METHYLPHENIDATE HYDROCHLORIDE
     Indication: PRODUCT USED FOR UNKNOWN INDICATION
  11. QVAR [Concomitant]
     Active Substance: BECLOMETHASONE DIPROPIONATE
     Indication: PRODUCT USED FOR UNKNOWN INDICATION

REACTIONS (1)
  - Convulsion [Fatal]

NARRATIVE: CASE EVENT DATE: 20140703
